FAERS Safety Report 23776283 (Version 1)
Quarter: 2024Q2

REPORT INFORMATION
  Report Type: Spontaneous
  Country: FR (occurrence: FR)
  Receive Date: 20240424
  Receipt Date: 20240424
  Transmission Date: 20240716
  Serious: Yes (Death, Life-Threatening, Hospitalization, Other)
  Sender: FDA-Public Use
  Company Number: FR-NOVPHSZ-PHHY2017FR179344

PATIENT
  Age: 35 Year
  Sex: Female

DRUGS (7)
  1. MYCOPHENOLATE MOFETIL [Suspect]
     Active Substance: MYCOPHENOLATE MOFETIL
     Indication: Lung transplant
     Dosage: 250 MG, BID
     Route: 065
  2. MYCOPHENOLATE MOFETIL [Suspect]
     Active Substance: MYCOPHENOLATE MOFETIL
     Indication: Immunosuppressant drug therapy
  3. TACROLIMUS [Suspect]
     Active Substance: TACROLIMUS
     Indication: Lung transplant
     Dosage: 0.6 MG, BID
     Route: 065
  4. TACROLIMUS [Suspect]
     Active Substance: TACROLIMUS
     Indication: Immunosuppressant drug therapy
  5. INSULIN NOS [Concomitant]
     Active Substance: INSULIN NOS
     Indication: Diabetes mellitus
     Route: 065
  6. INSULIN NOS [Concomitant]
     Active Substance: INSULIN NOS
     Indication: Diabetes mellitus
     Route: 065
  7. INSULIN NOS [Concomitant]
     Active Substance: INSULIN NOS
     Route: 065

REACTIONS (18)
  - Phaeohyphomycosis [Fatal]
  - Cerebral haemorrhage [Fatal]
  - Pyramidal tract syndrome [Fatal]
  - Paraplegia [Fatal]
  - Meningitis [Fatal]
  - Necrosis [Fatal]
  - Nervous system disorder [Fatal]
  - Sciatica [Fatal]
  - Urinary incontinence [Fatal]
  - Central nervous system lesion [Fatal]
  - Pleocytosis [Fatal]
  - Acute respiratory failure [Recovering/Resolving]
  - Pulmonary mucormycosis [Unknown]
  - Pseudomonas infection [Unknown]
  - Pneumonia influenzal [Unknown]
  - Cytomegalovirus infection [Unknown]
  - Myelitis [Not Recovered/Not Resolved]
  - Product use in unapproved indication [Unknown]

NARRATIVE: CASE EVENT DATE: 20130301
